FAERS Safety Report 9981256 (Version 1)
Quarter: 2014Q1

REPORT INFORMATION
  Report Type: Spontaneous
  Country: US (occurrence: None)
  Receive Date: 20140306
  Receipt Date: 20140306
  Transmission Date: 20141002
  Serious: Yes (Disabling)
  Sender: FDA-Public Use
  Company Number: None

PATIENT
  Age: 48 Year
  Sex: Male
  Weight: 106.6 kg

DRUGS (1)
  1. FENOFIBRATE [Suspect]
     Indication: HYPERCHOLESTEROLAEMIA
     Dosage: 1 TABLET ONCE DAILY TAKEN BY MOUTH
     Route: 048
     Dates: start: 20131205, end: 20140303

REACTIONS (9)
  - Nausea [None]
  - Constipation [None]
  - Abdominal distension [None]
  - Fatigue [None]
  - Agitation [None]
  - Urine output decreased [None]
  - Flank pain [None]
  - Nasal congestion [None]
  - Abdominal pain [None]
